FAERS Safety Report 11229964 (Version 2)
Quarter: 2015Q3

REPORT INFORMATION
  Report Type: Report from Study
  Country: PL (occurrence: PL)
  Receive Date: 20150701
  Receipt Date: 20150716
  Transmission Date: 20151125
  Serious: Yes (Death)
  Sender: FDA-Public Use
  Company Number: PL-ROCHE-1601161

PATIENT

DRUGS (2)
  1. ALTEPLASE [Suspect]
     Active Substance: ALTEPLASE
     Dosage: CONSTANT-RATE INFUSION INTRA-ARTERIALLY IN A DOSAGE OF 0.8 MG/H
     Route: 013
  2. ALTEPLASE [Suspect]
     Active Substance: ALTEPLASE
     Indication: PERIPHERAL ARTERY THROMBOSIS
     Dosage: BOLUS
     Route: 013

REACTIONS (2)
  - Hypertensive crisis [Fatal]
  - Product use issue [Unknown]
